FAERS Safety Report 23540339 (Version 1)
Quarter: 2024Q1

REPORT INFORMATION
  Report Type: Spontaneous
  Country: US (occurrence: US)
  Receive Date: 20240219
  Receipt Date: 20240219
  Transmission Date: 20240410
  Serious: No
  Sender: FDA-Public Use
  Company Number: US-Stemline Therapeutics, Inc.-2023ST004574

PATIENT
  Age: 32 Year
  Sex: Female

DRUGS (5)
  1. ORSERDU [Suspect]
     Active Substance: ELACESTRANT
     Indication: Product used for unknown indication
     Route: 048
     Dates: start: 202309
  2. ORSERDU [Suspect]
     Active Substance: ELACESTRANT
     Route: 048
     Dates: start: 20231008
  3. PROMETHAZINE [Concomitant]
     Active Substance: PROMETHAZINE HYDROCHLORIDE
     Indication: Abdominal distension
  4. PROMETHAZINE [Concomitant]
     Active Substance: PROMETHAZINE HYDROCHLORIDE
     Indication: Abdominal pain upper
  5. PROMETHAZINE [Concomitant]
     Active Substance: PROMETHAZINE HYDROCHLORIDE
     Indication: Abdominal discomfort

REACTIONS (12)
  - Pulmonary pain [Unknown]
  - Pain [Unknown]
  - Chest tube insertion [Unknown]
  - Chest pain [Unknown]
  - Vomiting [Unknown]
  - Dyspnoea [Unknown]
  - Diarrhoea [Unknown]
  - Abdominal distension [Unknown]
  - Dehydration [Unknown]
  - Abdominal pain upper [Unknown]
  - Abdominal discomfort [Unknown]
  - Decreased appetite [Unknown]
